FAERS Safety Report 8579238 (Version 3)
Quarter: 2013Q1

REPORT INFORMATION
  Report Type: Spontaneous
  Country: BR (occurrence: BR)
  Receive Date: 20120525
  Receipt Date: 20130311
  Transmission Date: 20140127
  Serious: Yes (Other)
  Sender: FDA-Public Use
  Company Number: BR-AMGEN-BRASP2012031365

PATIENT
  Age: 58 Year
  Sex: Female
  Weight: 75 kg

DRUGS (11)
  1. ENBREL [Suspect]
     Indication: RHEUMATOID ARTHRITIS
     Dosage: UNK
     Dates: start: 201208
  2. ATENOLOL [Concomitant]
     Indication: HYPERTENSION
     Dosage: 50 MG, UNK
     Dates: start: 2009
  3. LOSARTAN [Concomitant]
     Indication: HYPERTENSION
     Dosage: 50 MG, 1X/DAY (AT NIGHT)
     Dates: start: 2009
  4. LASIX                              /00032601/ [Concomitant]
     Indication: HYPERTENSION
     Dosage: UNK
     Dates: start: 2009
  5. SPIRONOLACTONE [Concomitant]
     Indication: OEDEMA
     Dosage: 25 MG, 1X/DAY
  6. SIMVASTATIN [Concomitant]
     Indication: BLOOD CHOLESTEROL
     Dosage: 20 MG, 1X/DAY (AT NIGHT)
  7. PREDNISONE [Concomitant]
     Dosage: 5 MG, 2X/DAY
  8. NIMESULIDE [Concomitant]
     Indication: ANTIINFLAMMATORY THERAPY
     Dosage: 10 MG
  9. RANITIDINE [Concomitant]
     Indication: PROPHYLAXIS AGAINST GASTROINTESTINAL ULCER
     Dosage: 150 MG, 2X/DAY
  10. FLUOXETINE HYDROCHLORIDE [Concomitant]
     Dosage: 20 MG, 1X/DAY (IN THE MORNING)
  11. CARVEDILOL [Concomitant]
     Dosage: 6.250 (UNSPECIFIED UNIT), 2X/DAY

REACTIONS (2)
  - Thrombosis [Recovering/Resolving]
  - Cardiac failure [Unknown]
